FAERS Safety Report 19714350 (Version 1)
Quarter: 2021Q3

REPORT INFORMATION
  Report Type: Report from Study
  Country: None (occurrence: CA)
  Receive Date: 20210818
  Receipt Date: 20210818
  Transmission Date: 20211014
  Serious: Yes (Other)
  Sender: FDA-Public Use
  Company Number: CA-ABBVIE-21K-028-4041601-00

PATIENT
  Sex: Male

DRUGS (1)
  1. HUMIRA [Suspect]
     Active Substance: ADALIMUMAB
     Indication: CROHN^S DISEASE
     Route: 058
     Dates: start: 20151114

REACTIONS (4)
  - Polyp [Unknown]
  - Ulcer [Recovering/Resolving]
  - Haemorrhoids [Not Recovered/Not Resolved]
  - Colitis [Not Recovered/Not Resolved]
